FAERS Safety Report 5598035-9 (Version None)
Quarter: 2008Q1

REPORT INFORMATION
  Report Type: 
  Country: None (occurrence: None)
  Receive Date: 20080122
  Receipt Date: 20080108
  Transmission Date: 20080703
  Serious: Yes (Other)
  Sender: FDA-Public Use
  Company Number: US-ELI_LILLY_AND_COMPANY-US200712002113

PATIENT
  Sex: Female

DRUGS (2)
  1. FORTEO [Suspect]
     Indication: OSTEOPOROSIS
     Dosage: 20 UG, DAILY (1/D)
     Dates: start: 20060701
  2. PREMPRO [Concomitant]

REACTIONS (5)
  - COUGH [None]
  - GAMMOPATHY [None]
  - MUSCULOSKELETAL DISCOMFORT [None]
  - NEOPLASM MALIGNANT [None]
  - PHARYNGOLARYNGEAL PAIN [None]
